FAERS Safety Report 5999457-4 (Version None)
Quarter: 2008Q4

REPORT INFORMATION
  Report Type: 
  Country: None (occurrence: None)
  Receive Date: 20081211
  Receipt Date: 20081211
  Transmission Date: 20090506
  Serious: No
  Sender: FDA-Public Use
  Company Number: None

PATIENT
  Sex: Male
  Weight: 79.3795 kg

DRUGS (1)
  1. GLIPIZIDE [Suspect]
     Indication: TYPE 2 DIABETES MELLITUS
     Dosage: 2 10 MG TABS MORNING AND NITE
     Dates: start: 20081107

REACTIONS (5)
  - ABDOMINAL PAIN UPPER [None]
  - EYE DISORDER [None]
  - FATIGUE [None]
  - LABORATORY TEST ABNORMAL [None]
  - PRODUCT QUALITY ISSUE [None]
